FAERS Safety Report 16973573 (Version 1)
Quarter: 2019Q4

REPORT INFORMATION
  Report Type: Spontaneous
  Country: US (occurrence: US)
  Receive Date: 20191030
  Receipt Date: 20191030
  Transmission Date: 20200122
  Serious: No
  Sender: FDA-Public Use
  Company Number: US-PFIZER INC-2019463580

PATIENT
  Age: 68 Year
  Sex: Female
  Weight: 64.41 kg

DRUGS (2)
  1. ESTRING [Suspect]
     Active Substance: ESTRADIOL
     Indication: VULVOVAGINAL DRYNESS
     Dosage: UNK (12-WEEK DELIVERY SYSTEM INSERTED VAGINAL)
     Route: 067
  2. ESTRING [Suspect]
     Active Substance: ESTRADIOL
     Indication: ATROPHY

REACTIONS (2)
  - Drug ineffective [Unknown]
  - Product complaint [Unknown]

NARRATIVE: CASE EVENT DATE: 2019
